FAERS Safety Report 10073467 (Version 1)
Quarter: 2014Q2

REPORT INFORMATION
  Report Type: Spontaneous
  Country: IT (occurrence: IT)
  Receive Date: 20140411
  Receipt Date: 20140411
  Transmission Date: 20141212
  Serious: Yes (Other)
  Sender: FDA-Public Use
  Company Number: IT-WATSON-2014-06844

PATIENT
  Sex: Female

DRUGS (3)
  1. PARACETAMOL  (UNKNOWN) [Suspect]
     Indication: OSTEOARTHRITIS
     Dosage: UNKNOWN
     Route: 065
  2. DICLOFENAC (UNKNOWN) [Suspect]
     Indication: OSTEOARTHRITIS
     Dosage: UNKNOWN
     Route: 065
  3. KETOPROFEN (UNKNOWN) [Suspect]
     Indication: OSTEOARTHRITIS
     Dosage: UNKNOWN
     Route: 065

REACTIONS (1)
  - Angioedema [Unknown]
